FAERS Safety Report 7534603-2 (Version None)
Quarter: 2011Q2

REPORT INFORMATION
  Report Type: 
  Country: None (occurrence: None)
  Receive Date: 20110609
  Receipt Date: 20100416
  Transmission Date: 20111010
  Serious: Yes (Death)
  Sender: FDA-Public Use
  Company Number: PHHY2010JP12600

PATIENT
  Sex: Female
  Weight: 47 kg

DRUGS (5)
  1. DESFERAL [Concomitant]
     Dosage: 500 MG, UNK
     Route: 030
     Dates: start: 20071114, end: 20080613
  2. RED BLOOD CELLS, CONCENTRATED [Concomitant]
     Dosage: 2 UNITS
     Dates: end: 20091120
  3. EXJADE [Suspect]
     Indication: IRON OVERLOAD
     Dosage: 875 MG PER DAY
     Route: 048
     Dates: start: 20080701, end: 20091110
  4. PLATELETS [Concomitant]
     Dosage: 20 UNITS
     Dates: end: 20091109
  5. PLATELETS [Concomitant]
     Dosage: 20 UNITS EVERY SECOND DAY
     Dates: start: 20091112

REACTIONS (2)
  - IMMUNODEFICIENCY [None]
  - PNEUMONIA [None]
